FAERS Safety Report 7573386-7 (Version None)
Quarter: 2011Q2

REPORT INFORMATION
  Report Type: 
  Country: None (occurrence: None)
  Receive Date: 20110627
  Receipt Date: 20110624
  Transmission Date: 20111010
  Serious: Yes (Death, Other)
  Sender: FDA-Public Use
  Company Number: PHFR2011IE00587

PATIENT
  Sex: Male

DRUGS (5)
  1. VALPROATE SODIUM [Concomitant]
     Indication: AFFECTIVE DISORDER
     Dosage: 1 G DAILY
     Route: 048
  2. AMISULPRIDE [Concomitant]
     Indication: PSYCHOTIC DISORDER
     Dosage: 500 MG DAILY
     Route: 048
     Dates: start: 20080101
  3. ATENOLOL [Concomitant]
     Indication: HYPERTENSION
     Dosage: 50 MG DAILY
     Route: 048
  4. ESCITALOPRAM [Concomitant]
     Indication: AFFECTIVE DISORDER
     Dosage: 10 MG DAILY
     Route: 048
  5. CLOZAPINE [Suspect]
     Indication: SCHIZOPHRENIA
     Route: 048
     Dates: start: 20070221

REACTIONS (6)
  - CARDIAC ARREST [None]
  - APPENDICITIS [None]
  - MALAISE [None]
  - SYNCOPE [None]
  - DIVERTICULITIS [None]
  - COLITIS ISCHAEMIC [None]
